FAERS Safety Report 5374412-6 (Version None)
Quarter: 2007Q2

REPORT INFORMATION
  Report Type: 
  Country: None (occurrence: None)
  Receive Date: 20070629
  Receipt Date: 20070622
  Transmission Date: 20071010
  Serious: Yes (Life-Threatening)
  Sender: FDA-Public Use
  Company Number: JP-AVENTIS-200711320JP

PATIENT
  Age: 79 Year
  Sex: Male
  Weight: 65 kg

DRUGS (5)
  1. LASIX [Suspect]
     Route: 051
     Dates: start: 20060501, end: 20070519
  2. LASIX [Suspect]
     Route: 048
     Dates: start: 20060501, end: 20070525
  3. PHENOBAL                           /00023201/ [Concomitant]
     Route: 058
     Dates: start: 20030501
  4. HANP [Concomitant]
     Indication: CARDIAC FAILURE
     Route: 041
     Dates: start: 20070512, end: 20070523
  5. CATABON [Concomitant]
     Indication: CARDIAC FAILURE
     Route: 041
     Dates: start: 20070512, end: 20070523

REACTIONS (1)
  - ASTHMA [None]
